FAERS Safety Report 9186462 (Version 1)
Quarter: 2013Q1

REPORT INFORMATION
  Report Type: Spontaneous
  Country: NZ (occurrence: NZ)
  Receive Date: 20130325
  Receipt Date: 20130325
  Transmission Date: 20140127
  Serious: Yes (Hospitalization)
  Sender: FDA-Public Use
  Company Number: PHHY2013NZ027222

PATIENT
  Sex: Female

DRUGS (1)
  1. GLIVEC [Suspect]
     Indication: CHRONIC MYELOID LEUKAEMIA
     Dosage: 400 MG, UNK
     Route: 048
     Dates: start: 20061101, end: 201210

REACTIONS (7)
  - Lymphoma [Unknown]
  - Second primary malignancy [Unknown]
  - Respiratory disorder [Unknown]
  - Abasia [Unknown]
  - Dyspnoea [Unknown]
  - Hypophagia [Unknown]
  - Asthenia [Unknown]
